FAERS Safety Report 12756242 (Version 1)
Quarter: 2016Q3

REPORT INFORMATION
  Report Type: Spontaneous
  Country: VE (occurrence: VE)
  Receive Date: 20160916
  Receipt Date: 20160916
  Transmission Date: 20161109
  Serious: Yes (Other)
  Sender: FDA-Public Use
  Company Number: PHHY2016VE126191

PATIENT
  Sex: Male

DRUGS (6)
  1. FORADIL [Suspect]
     Active Substance: FORMOTEROL FUMARATE
     Indication: ASTHMATIC CRISIS
     Dosage: 800 UG, QD
     Route: 055
     Dates: start: 2007
  2. FORADIL [Suspect]
     Active Substance: FORMOTEROL FUMARATE
     Dosage: 400 UG, (EVERY 3 DAYS ONLY)
     Route: 055
  3. FORADIL [Suspect]
     Active Substance: FORMOTEROL FUMARATE
     Dosage: 400 UG, (EVERY 2 OR 3 DAYS)
     Route: 055
  4. MIFLONIDE [Suspect]
     Active Substance: BUDESONIDE
     Dosage: 12 UG, QD (EVERY 2 OR 3 DAYS)
     Route: 055
  5. MIFLONIDE [Suspect]
     Active Substance: BUDESONIDE
     Dosage: 12 UG, QD (EVERY 3 DAYS ONLY)
     Route: 055
  6. MIFLONIDE [Suspect]
     Active Substance: BUDESONIDE
     Indication: ASTHMATIC CRISIS
     Dosage: 24 UG, QD
     Route: 055
     Dates: start: 2007

REACTIONS (7)
  - Wheezing [Not Recovered/Not Resolved]
  - Asthmatic crisis [Not Recovered/Not Resolved]
  - Hypersensitivity [Not Recovered/Not Resolved]
  - Cough [Not Recovered/Not Resolved]
  - Hyperhidrosis [Not Recovered/Not Resolved]
  - Asthma [Not Recovered/Not Resolved]
  - Underdose [Unknown]
